FAERS Safety Report 15723756 (Version 1)
Quarter: 2018Q4

REPORT INFORMATION
  Report Type: Spontaneous
  Country: GB (occurrence: GB)
  Receive Date: 20181214
  Receipt Date: 20181214
  Transmission Date: 20190205
  Serious: Yes (Death)
  Sender: FDA-Public Use
  Company Number: GB-JNJFOC-20181215281

PATIENT
  Age: 66 Year
  Sex: Female
  Weight: 88 kg

DRUGS (3)
  1. MIRABEGRON [Concomitant]
     Active Substance: MIRABEGRON
     Route: 048
  2. ATORVASTATIN [Concomitant]
     Active Substance: ATORVASTATIN
     Indication: BLOOD CHOLESTEROL INCREASED
     Route: 048
  3. XARELTO [Suspect]
     Active Substance: RIVAROXABAN
     Indication: DEEP VEIN THROMBOSIS
     Route: 048

REACTIONS (4)
  - Cardiac arrest [Fatal]
  - Pulmonary embolism [Fatal]
  - Cerebrovascular accident [Fatal]
  - Cerebral haemorrhage [Fatal]

NARRATIVE: CASE EVENT DATE: 20181008
